FAERS Safety Report 12582323 (Version 1)
Quarter: 2016Q3

REPORT INFORMATION
  Report Type: Spontaneous
  Country: US (occurrence: US)
  Receive Date: 20160722
  Receipt Date: 20160722
  Transmission Date: 20161109
  Serious: No
  Sender: FDA-Public Use
  Company Number: US-BAYER-2016-136692

PATIENT
  Age: 68 Year
  Sex: Male
  Weight: 74.83 kg

DRUGS (3)
  1. ALEVE [Suspect]
     Active Substance: NAPROXEN SODIUM
     Indication: GOUT
     Dosage: 2 DF, PRN
     Route: 048
  2. COLCHICINE. [Concomitant]
     Active Substance: COLCHICINE
     Indication: GOUT
  3. ALEVE [Suspect]
     Active Substance: NAPROXEN SODIUM
     Indication: GOUT
     Dosage: 2 DF, PRN
     Route: 048
     Dates: start: 2013

REACTIONS (3)
  - Abdominal pain upper [Recovered/Resolved]
  - Product use issue [None]
  - Dyspepsia [Recovered/Resolved]
